FAERS Safety Report 4565531-2 (Version None)
Quarter: 2005Q1

REPORT INFORMATION
  Report Type: 
  Country: None (occurrence: None)
  Receive Date: 20050131
  Receipt Date: 20050115
  Transmission Date: 20050727
  Serious: Yes (Other)
  Sender: FDA-Public Use
  Company Number: DZ-GLAXOSMITHKLINE-B0369047A

PATIENT
  Age: 16 Year
  Sex: Female

DRUGS (1)
  1. SERETIDE [Suspect]
     Indication: ASTHMA
     Dosage: 250U TWICE PER DAY
     Dates: start: 20041201

REACTIONS (3)
  - LOSS OF CONSCIOUSNESS [None]
  - TACHYCARDIA [None]
  - TREMOR [None]
